FAERS Safety Report 8457667-0 (Version None)
Quarter: 2012Q2

REPORT INFORMATION
  Report Type: 
  Country: None (occurrence: None)
  Receive Date: 20120618
  Receipt Date: 20120618
  Transmission Date: 20120825
  Serious: No
  Sender: FDA-Public Use
  Company Number: None

PATIENT
  Age: 68 Year
  Sex: Female
  Weight: 51.9822 kg

DRUGS (1)
  1. PROLIA [Suspect]
     Indication: OSTEOPOROSIS
     Dosage: 60MG Q 6MONTHS SUBQ
     Route: 058
     Dates: start: 20111220

REACTIONS (2)
  - GINGIVAL PAIN [None]
  - TOOTHACHE [None]
